FAERS Safety Report 21181207 (Version 2)
Quarter: 2023Q4

REPORT INFORMATION
  Report Type: Report from Study
  Country: CA (occurrence: CA)
  Receive Date: 20220806
  Receipt Date: 20231117
  Transmission Date: 20240110
  Serious: Yes (Hospitalization, Other)
  Sender: FDA-Public Use
  Company Number: None

PATIENT
  Age: 77 Year
  Sex: Male

DRUGS (18)
  1. METHOTREXATE [Suspect]
     Active Substance: METHOTREXATE
     Indication: Product used for unknown indication
     Route: 065
  2. CALCIUM CARBONATE [Suspect]
     Active Substance: CALCIUM CARBONATE
     Indication: Product used for unknown indication
     Dosage: 2 EVERY 1 DAYS
     Route: 065
  3. DESOXIMETASONE [Suspect]
     Active Substance: DESOXIMETASONE
     Indication: Product used for unknown indication
     Dosage: 1 EVERY 1 DAYS
     Route: 065
  4. SANDOSTATIN [Suspect]
     Active Substance: OCTREOTIDE ACETATE
     Indication: Carcinoid tumour of the small bowel
     Dosage: 1 EVERY 1 MONTHS
     Route: 030
  5. XGEVA [Suspect]
     Active Substance: DENOSUMAB
     Indication: Neuritis
     Dosage: SINGLE-USE VIAL. FOR S.C. USE ONLY. PRESERVATIVE-FREE
     Route: 058
  6. CORTISONE [Suspect]
     Active Substance: CORTISONE
     Indication: Arthritis
     Dosage: 2 EVERY 1 DAYS
  7. CALCIUM GLUCONATE [Suspect]
     Active Substance: CALCIUM GLUCONATE
     Indication: Product used for unknown indication
     Dosage: 2 EVERY 1 DAYS
  8. ACETAMINOPHEN [Concomitant]
     Active Substance: ACETAMINOPHEN
     Route: 065
  9. CLOPIDOGREL BISULFATE [Concomitant]
     Active Substance: CLOPIDOGREL BISULFATE
     Route: 065
  10. FOLIC ACID [Concomitant]
     Active Substance: FOLIC ACID
     Route: 065
  11. LASIX [Concomitant]
     Active Substance: FUROSEMIDE
     Indication: Blood potassium increased
  12. LISINOPRIL [Concomitant]
     Active Substance: LISINOPRIL
     Route: 065
  13. LEVOFLOXACIN [Concomitant]
     Active Substance: LEVOFLOXACIN
     Route: 065
  14. METOPROLOL [Concomitant]
     Active Substance: METOPROLOL
     Route: 065
  15. ENOXAPARIN SODIUM [Concomitant]
     Active Substance: ENOXAPARIN SODIUM
     Indication: Product used for unknown indication
     Route: 058
  16. ENOXAPARIN SODIUM [Concomitant]
     Active Substance: ENOXAPARIN SODIUM
     Indication: Product used for unknown indication
  17. SANDOSTATIN [Suspect]
     Active Substance: OCTREOTIDE ACETATE
     Indication: Carcinoid tumour of the small bowel
     Dosage: 1 EVERY 1 MONTHS
     Route: 030
  18. CORTISONE [Suspect]
     Active Substance: CORTISONE
     Indication: Arthritis

REACTIONS (31)
  - Abdominal pain [Recovered/Resolved]
  - Arthralgia [Recovered/Resolved]
  - Arthritis [Recovered/Resolved]
  - Asthenia [Recovered/Resolved]
  - Blood pressure decreased [Recovered/Resolved]
  - Blood pressure diastolic increased [Recovered/Resolved]
  - Blood pressure systolic increased [Recovered/Resolved]
  - Blood test abnormal [Recovered/Resolved]
  - Body temperature decreased [Recovered/Resolved]
  - Carcinoid tumour of the small bowel [Recovered/Resolved]
  - Cardiac disorder [Recovered/Resolved]
  - Cholelithiasis [Recovered/Resolved]
  - Cough [Recovered/Resolved]
  - Decreased appetite [Recovered/Resolved]
  - Dyspnoea [Recovered/Resolved]
  - Epistaxis [Recovered/Resolved]
  - Fatigue [Recovered/Resolved]
  - General physical health deterioration [Recovered/Resolved]
  - Haemoglobin decreased [Recovered/Resolved]
  - Hypertension [Recovered/Resolved]
  - Influenza like illness [Recovered/Resolved]
  - Injection site pain [Recovered/Resolved]
  - Malignant neoplasm progression [Recovered/Resolved]
  - Metastases to bone [Recovered/Resolved]
  - Metastases to liver [Recovered/Resolved]
  - Needle issue [Unknown]
  - Pain [Recovered/Resolved]
  - Pleural effusion [Recovered/Resolved]
  - Transfusion-related circulatory overload [Recovered/Resolved]
  - Weight decreased [Recovered/Resolved]
  - Lung disorder [Recovered/Resolved]
